FAERS Safety Report 8958477 (Version 1)
Quarter: 2012Q4

REPORT INFORMATION
  Report Type: 
  Country: US (occurrence: None)
  Receive Date: 20121205
  Receipt Date: 20121205
  Transmission Date: 20130627
  Serious: Yes (Hospitalization)
  Sender: FDA-Public Use
  Company Number: None

PATIENT
  Sex: Female
  Weight: 84 kg

DRUGS (1)
  1. ALFA 2 INTERFERON 2B [Suspect]
     Dates: start: 20120130, end: 20120130

REACTIONS (1)
  - Neutrophil count decreased [None]
